FAERS Safety Report 4536192-3 (Version None)
Quarter: 2004Q4

REPORT INFORMATION
  Report Type: 
  Country: None (occurrence: None)
  Receive Date: 20041223
  Receipt Date: 20041220
  Transmission Date: 20050328
  Serious: Yes (Death)
  Sender: FDA-Public Use
  Company Number: US-GLAXOSMITHKLINE-A0538226A

PATIENT
  Sex: Male

DRUGS (3)
  1. PAXIL CR [Suspect]
     Indication: ILL-DEFINED DISORDER
     Route: 048
  2. STRATTERA [Suspect]
     Indication: DRUG USE FOR UNKNOWN INDICATION
  3. RISPERDAL [Concomitant]

REACTIONS (1)
  - COMPLETED SUICIDE [None]
